FAERS Safety Report 23721132 (Version 2)
Quarter: 2024Q2

REPORT INFORMATION
  Report Type: Spontaneous
  Country: CN (occurrence: CN)
  Receive Date: 20240409
  Receipt Date: 20240418
  Transmission Date: 20240716
  Serious: Yes (Hospitalization)
  Sender: FDA-Public Use
  Company Number: CN-002147023-NVSC2024CN073820

PATIENT
  Age: 37 Year
  Sex: Male

DRUGS (7)
  1. COSENTYX [Suspect]
     Active Substance: SECUKINUMAB
     Indication: Psoriasis
     Dosage: 2 DOSAGE FORM (2 INJECTIONS (300MG?
     Route: 065
     Dates: start: 20230320
  2. COSENTYX [Suspect]
     Active Substance: SECUKINUMAB
     Dosage: 2 DOSAGE FORM (2 INJECTIONS EACH TIME)
     Route: 065
     Dates: start: 20230327
  3. COSENTYX [Suspect]
     Active Substance: SECUKINUMAB
     Dosage: 2 DOSAGE FORM (2 INJECTIONS EACH TIME)
     Route: 065
     Dates: start: 20230405
  4. COSENTYX [Suspect]
     Active Substance: SECUKINUMAB
     Dosage: 2 DOSAGE FORM (2 INJECTIONS EACH TIME)
     Route: 065
     Dates: start: 20230412
  5. COSENTYX [Suspect]
     Active Substance: SECUKINUMAB
     Dosage: 2 DOSAGE FORM (2 INJECTIONS (300MG?
     Route: 065
     Dates: start: 20230825
  6. COSENTYX [Suspect]
     Active Substance: SECUKINUMAB
     Dosage: 2 DOSAGE FORM (2 INJECTIONS EACH TIME)
     Route: 065
     Dates: start: 20230925
  7. COSENTYX [Suspect]
     Active Substance: SECUKINUMAB
     Dosage: 2 DOSAGE FORM (2 INJECTIONS EACH TIME)
     Route: 065
     Dates: start: 20231028

REACTIONS (10)
  - Weight decreased [Unknown]
  - Skin laxity [Unknown]
  - Muscle spasms [Unknown]
  - Abnormal dreams [Unknown]
  - Gait disturbance [Unknown]
  - Asthenia [Unknown]
  - Motor neurone disease [Not Recovered/Not Resolved]
  - Muscle atrophy [Unknown]
  - Motor neurone disease [Unknown]
  - Amyotrophic lateral sclerosis [Unknown]

NARRATIVE: CASE EVENT DATE: 20230801
